FAERS Safety Report 11330490 (Version 1)
Quarter: 2015Q3

REPORT INFORMATION
  Report Type: Spontaneous
  Country: US (occurrence: None)
  Receive Date: 20150730
  Receipt Date: 20150730
  Transmission Date: 20151125
  Serious: No
  Sender: FDA-Public Use
  Company Number: None

PATIENT
  Age: 64 Year
  Sex: Female
  Weight: 99.34 kg

DRUGS (13)
  1. PROTONIX [Concomitant]
     Active Substance: PANTOPRAZOLE SODIUM
  2. AZELASTINE [Concomitant]
     Active Substance: AZELASTINE
  3. IBUPROFEN. [Concomitant]
     Active Substance: IBUPROFEN
  4. FLONASE [Concomitant]
     Active Substance: FLUTICASONE PROPIONATE
  5. ALLEGRA [Concomitant]
     Active Substance: FEXOFENADINE HYDROCHLORIDE
  6. MYRBETRIQ [Concomitant]
     Active Substance: MIRABEGRON
  7. LISINOPRIL. [Suspect]
     Active Substance: LISINOPRIL
     Indication: HYPERTENSION
     Route: 048
     Dates: start: 20150714, end: 20150721
  8. MULTIVITAMIN [Concomitant]
     Active Substance: VITAMINS
  9. INDEROL [Concomitant]
  10. KLONIPIN [Concomitant]
     Active Substance: CLONAZEPAM
  11. PAXIL [Concomitant]
     Active Substance: PAROXETINE HYDROCHLORIDE
  12. ASPIRIN. [Concomitant]
     Active Substance: ASPIRIN
  13. ACETAMINOPHEN. [Concomitant]
     Active Substance: ACETAMINOPHEN

REACTIONS (3)
  - Depression [None]
  - Panic reaction [None]
  - Suicidal ideation [None]

NARRATIVE: CASE EVENT DATE: 20150716
